FAERS Safety Report 8204784-6 (Version None)
Quarter: 2012Q1

REPORT INFORMATION
  Report Type: 
  Country: None (occurrence: None)
  Receive Date: 20120313
  Receipt Date: 20120302
  Transmission Date: 20120608
  Serious: Yes (Hospitalization)
  Sender: FDA-Public Use
  Company Number: US-JNJFOC-20120302464

PATIENT
  Sex: Female
  Weight: 74.84 kg

DRUGS (3)
  1. LASIX [Suspect]
     Indication: PRODUCT USED FOR UNKNOWN INDICATION
     Route: 065
  2. PREDNISONE [Suspect]
     Indication: PRODUCT USED FOR UNKNOWN INDICATION
     Route: 065
  3. REMICADE [Suspect]
     Indication: AUTOIMMUNE DISORDER
     Route: 042
     Dates: end: 20111101

REACTIONS (5)
  - OEDEMA PERIPHERAL [None]
  - PNEUMONIA [None]
  - BLINDNESS [None]
  - WEIGHT INCREASED [None]
  - OSTEONECROSIS [None]
